FAERS Safety Report 17269671 (Version 2)
Quarter: 2020Q3

REPORT INFORMATION
  Report Type: Report from Study
  Country: IL (occurrence: IL)
  Receive Date: 20200114
  Receipt Date: 20200908
  Transmission Date: 20201102
  Serious: Yes (Hospitalization, Other)
  Sender: FDA-Public Use
  Company Number: IL-SHIRE-IL201927699

PATIENT

DRUGS (4)
  1. VELAGLUCERASE ALFA [Suspect]
     Active Substance: VELAGLUCERASE ALFA
     Indication: GAUCHER^S DISEASE
     Dosage: UNK, 1X/2WKS 3/2 VIALS TOTAL OF 5 VIALS PER MONTH, 1200/800 UNITS A TOLTAL OF 2000 UNITS PER MONTH
     Route: 065
     Dates: start: 20120119
  2. VELAGLUCERASE ALFA [Suspect]
     Active Substance: VELAGLUCERASE ALFA
     Dosage: UNK, 1X/2WKS 3/2 VIALS TOTAL OF 5 VIALS PER MONTH, 1200/800 UNITS A TOLTAL OF 2000 UNITS PER MONTH
     Route: 065
     Dates: start: 20191120
  3. VELAGLUCERASE ALFA [Suspect]
     Active Substance: VELAGLUCERASE ALFA
     Dosage: 3/2 VIALS (TOTAL OF 5 VIALS PER MONTH), 1X/2WKS
     Route: 042
  4. CEREZYME [Concomitant]
     Active Substance: IMIGLUCERASE
     Indication: PRODUCT USED FOR UNKNOWN INDICATION

REACTIONS (4)
  - Maternal exposure during breast feeding [Unknown]
  - Foetal growth restriction [Recovered/Resolved]
  - COVID-19 [Not Recovered/Not Resolved]
  - Premature labour [Recovered/Resolved]
